FAERS Safety Report 19802176 (Version 1)
Quarter: 2021Q3

REPORT INFORMATION
  Report Type: Spontaneous
  Country: US (occurrence: US)
  Receive Date: 20210907
  Receipt Date: 20210907
  Transmission Date: 20211014
  Serious: Yes (Life-Threatening)
  Sender: FDA-Public Use
  Company Number: None

PATIENT
  Age: 57 Year
  Sex: Female
  Weight: 79.2 kg

DRUGS (7)
  1. MULTIVITAMIN PO DAILY [Concomitant]
  2. DEXAMETHASONE 10 MG PO ONCE [Concomitant]
  3. FISH OIL 50 MG PO DAILY [Concomitant]
  4. NILOTINIB 400 MG PO DAILY [Concomitant]
  5. LEVOTHYROXINE 75 MCG PO DAILY [Concomitant]
  6. TAXOL [Suspect]
     Active Substance: PACLITAXEL
     Indication: OVARIAN CANCER
     Dosage: ?          OTHER FREQUENCY:AS PART OF CHEMO;?
     Route: 041
     Dates: start: 20210629
  7. FEXOFENADINE 180 MG PO DAILY PRN [Concomitant]

REACTIONS (3)
  - Blood pressure increased [None]
  - Dyspnoea [None]
  - Erythema [None]

NARRATIVE: CASE EVENT DATE: 20210629
